FAERS Safety Report 10881708 (Version 1)
Quarter: 2015Q1

REPORT INFORMATION
  Report Type: Spontaneous
  Country: US (occurrence: None)
  Receive Date: 20150226
  Receipt Date: 20150226
  Transmission Date: 20150721
  Serious: Yes (Other)
  Sender: FDA-Public Use
  Company Number: None

PATIENT
  Age: 6 Year
  Sex: Female
  Weight: 20.1 kg

DRUGS (1)
  1. GUANFACINE HYDROCHLORIDE 3 MG ACTAVIS [Suspect]
     Active Substance: GUANFACINE HYDROCHLORIDE
     Indication: ATTENTION DEFICIT/HYPERACTIVITY DISORDER
     Route: 048
     Dates: start: 201412, end: 201501

REACTIONS (6)
  - Impulsive behaviour [None]
  - Abnormal behaviour [None]
  - Agitation [None]
  - Somnolence [None]
  - Aggression [None]
  - Fatigue [None]

NARRATIVE: CASE EVENT DATE: 201412
